FAERS Safety Report 19991624 (Version 3)
Quarter: 2021Q4

REPORT INFORMATION
  Report Type: Report from Study
  Country: BE (occurrence: BE)
  Receive Date: 20211025
  Receipt Date: 20211201
  Transmission Date: 20220304
  Serious: Yes (Hospitalization)
  Sender: FDA-Public Use
  Company Number: BE-SEATTLE GENETICS-2021SGN05368

PATIENT
  Age: 73 Year
  Sex: Male
  Weight: 62 kg

DRUGS (13)
  1. ENFORTUMAB VEDOTIN [Suspect]
     Active Substance: ENFORTUMAB VEDOTIN
     Indication: Transitional cell carcinoma
     Dosage: 1.25 MG/KG, EVERY 3 WEEKS (ON DAYS 1 AND 8 OF EVERY 3-WEEK CYCLE)
     Route: 042
     Dates: start: 20210809, end: 20210816
  2. PEMBROLIZUMAB [Suspect]
     Active Substance: PEMBROLIZUMAB
     Indication: Transitional cell carcinoma
     Dosage: 200 MG, EVERY 3 WEEKS (ON DAY 1 OF EACH 3-WEEK CYCLE)
     Route: 042
     Dates: start: 20210809
  3. MEDROL [Concomitant]
     Active Substance: METHYLPREDNISOLONE
     Indication: Product used for unknown indication
     Route: 048
     Dates: start: 20211007
  4. CHOLIXX RED [Concomitant]
     Indication: Product used for unknown indication
     Dosage: 1 DF, ONCE DAILY (240 TABLETS, QD, 1 TABLET)
     Route: 048
  5. MOMETASONE FUROATE [Concomitant]
     Active Substance: MOMETASONE FUROATE
     Indication: Product used for unknown indication
     Dosage: 50 MCG/DO BOTTLE 140 DO; NOSE; 1 X PER DAY, 1 DOSE TO 2 DOSES/DAY
     Route: 050
  6. ESOMEPRAZOL TEVA [Concomitant]
     Indication: Product used for unknown indication
     Route: 048
  7. BISOPROLOL FUMARATE [Concomitant]
     Active Substance: BISOPROLOL FUMARATE
     Indication: Product used for unknown indication
     Route: 048
  8. ASPIRIN [Concomitant]
     Active Substance: ASPIRIN
     Indication: Product used for unknown indication
     Route: 048
  9. AMLODIPINE\PERINDOPRIL [Concomitant]
     Active Substance: AMLODIPINE\PERINDOPRIL
     Indication: Product used for unknown indication
     Dosage: 1 DF, ONCE DAILY (5/5 MG TABLET , 1 X PER DAY)
     Route: 048
  10. Riopan [Concomitant]
     Indication: Product used for unknown indication
     Dosage: 1 DF, ONCE DAILY (800 MG/10 ML FL 250 ML, 1 DOSE, 1 X PER DAY AS NEEDED)
     Route: 048
  11. LINAGLIPTIN [Concomitant]
     Active Substance: LINAGLIPTIN
     Indication: Diabetes mellitus
     Route: 048
  12. CIPROFLOXACIN [Concomitant]
     Active Substance: CIPROFLOXACIN
     Indication: Product used for unknown indication
     Route: 048
     Dates: start: 20211006
  13. INSULIN GLARGINE [Concomitant]
     Active Substance: INSULIN GLARGINE
     Indication: Diabetes mellitus
     Dosage: 6 DF, ONCE DAILY (300 U/ML INJECTION, 6 UNITS PER DAY)
     Route: 058

REACTIONS (2)
  - Dyspnoea exertional [Recovered/Resolved]
  - Pyrexia [Recovered/Resolved]

NARRATIVE: CASE EVENT DATE: 20211011
